FAERS Safety Report 12474426 (Version 2)
Quarter: 2016Q3

REPORT INFORMATION
  Report Type: Report from Study
  Country: IT (occurrence: IT)
  Receive Date: 20160617
  Receipt Date: 20160704
  Transmission Date: 20161109
  Serious: Yes (Hospitalization, Other)
  Sender: FDA-Public Use
  Company Number: IT-BRISTOL-MYERS SQUIBB COMPANY-BMS-2016-046353

PATIENT
  Age: 58 Year
  Sex: Female

DRUGS (2)
  1. IPILIMUMAB [Suspect]
     Active Substance: IPILIMUMAB
     Indication: METASTATIC MALIGNANT MELANOMA
     Dosage: 620 MG, UNK
     Route: 042
     Dates: start: 20160513, end: 20160513
  2. FOTEMUSTINE [Suspect]
     Active Substance: FOTEMUSTINE
     Indication: METASTATIC MALIGNANT MELANOMA
     Dosage: 171 MG, UNK
     Route: 042
     Dates: start: 20160513, end: 20160527

REACTIONS (1)
  - Thrombocytopenia [Recovered/Resolved]

NARRATIVE: CASE EVENT DATE: 20160606
